FAERS Safety Report 8515762-1 (Version None)
Quarter: 2012Q3

REPORT INFORMATION
  Report Type: 
  Country: None (occurrence: None)
  Receive Date: 20120717
  Receipt Date: 20120711
  Transmission Date: 20120928
  Serious: Yes (Other)
  Sender: FDA-Public Use
  Company Number: CA-ABBOTT-11P-028-0875624-00

PATIENT
  Sex: Male
  Weight: 77.18 kg

DRUGS (1)
  1. LUPRON DEPOT [Suspect]
     Indication: PROSTATE CANCER
     Dates: start: 20101216, end: 20111116

REACTIONS (3)
  - INCREASED UPPER AIRWAY SECRETION [None]
  - DYSPHONIA [None]
  - CEREBROVASCULAR ACCIDENT [None]
